FAERS Safety Report 8505297-4 (Version None)
Quarter: 2012Q3

REPORT INFORMATION
  Report Type: 
  Country: None (occurrence: None)
  Receive Date: 20120712
  Receipt Date: 20120703
  Transmission Date: 20120928
  Serious: Yes (Other)
  Sender: FDA-Public Use
  Company Number: CA-JNJFOC-20120701528

PATIENT
  Sex: Female
  Weight: 90.4 kg

DRUGS (14)
  1. METFORMIN HCL [Concomitant]
     Route: 065
  2. ADVAIR DISKUS 100/50 [Concomitant]
     Route: 065
  3. AZATHIOPRINE [Concomitant]
     Route: 065
  4. TOBRAMYCIN [Concomitant]
     Route: 065
  5. CELEBREX [Concomitant]
     Route: 065
  6. SPIRIVA [Concomitant]
     Route: 065
  7. OLMESARTAN MEDOXOMIL [Concomitant]
     Route: 065
  8. REMICADE [Suspect]
     Indication: CROHN'S DISEASE
     Route: 042
  9. NOVO-SPIROTON [Concomitant]
     Route: 065
  10. VENTOLIN [Concomitant]
     Route: 065
  11. BUSCOPAN [Concomitant]
     Route: 065
  12. DITROPAN [Concomitant]
     Route: 065
  13. ESCITALOPRAM [Concomitant]
     Route: 065
  14. LIPITOR [Concomitant]
     Route: 065

REACTIONS (1)
  - BACK PAIN [None]
